FAERS Safety Report 4527835-9 (Version None)
Quarter: 2004Q4

REPORT INFORMATION
  Report Type: 
  Country: None (occurrence: None)
  Receive Date: 20041123
  Receipt Date: 20040120
  Transmission Date: 20050328
  Serious: Yes (Hospitalization)
  Sender: FDA-Public Use
  Company Number: ATO-04-0066

PATIENT
  Age: 42 Year
  Sex: Male
  Weight: 72.5755 kg

DRUGS (5)
  1. TRISENOX [Suspect]
     Indication: OESOPHAGEAL CARCINOMA
     Dosage: 11 MG (11 MG ) IVI
     Route: 042
     Dates: start: 20031215, end: 20031215
  2. FLUOROURACIL [Suspect]
     Indication: OESOPHAGEAL CARCINOMA
     Dosage: 807 MG (807 MG ), IVI
     Route: 042
     Dates: start: 20031215, end: 20031215
  3. PROTONIX [Concomitant]
  4. PHENERGAN [Concomitant]
  5. PERCOCET [Concomitant]

REACTIONS (2)
  - NEUTROPENIA [None]
  - WOUND INFECTION [None]
